FAERS Safety Report 6045160-4 (Version None)
Quarter: 2009Q1

REPORT INFORMATION
  Report Type: 
  Country: None (occurrence: None)
  Receive Date: 20090121
  Receipt Date: 20090109
  Transmission Date: 20090719
  Serious: Yes (Disabling)
  Sender: FDA-Public Use
  Company Number: JP-ASTRAZENECA-2009SE00343

PATIENT
  Sex: Male
  Weight: 66 kg

DRUGS (5)
  1. BLOPRESS TABLETS 8 [Suspect]
     Indication: HYPERTENSION
     Route: 048
     Dates: end: 20081127
  2. AMLODIPINE [Concomitant]
     Route: 048
  3. FUROSEMIDE [Concomitant]
     Route: 048
  4. ASPIRIN [Concomitant]
     Route: 048
  5. NATEGLINIDE [Concomitant]
     Route: 048

REACTIONS (1)
  - RHABDOMYOLYSIS [None]
